FAERS Safety Report 10013996 (Version 2)
Quarter: 2014Q2

REPORT INFORMATION
  Report Type: Spontaneous
  Country: US (occurrence: US)
  Receive Date: 20140317
  Receipt Date: 20140415
  Transmission Date: 20141212
  Serious: Yes (Hospitalization)
  Sender: FDA-Public Use
  Company Number: US-JNJFOC-20140302839

PATIENT
  Age: 54 Year
  Sex: Female
  Weight: 62 kg

DRUGS (6)
  1. DOXORUBICIN HYDROCHLORIDE [Suspect]
     Indication: OVARIAN CANCER
     Route: 042
     Dates: start: 20130904, end: 20140124
  2. EC145 [Suspect]
     Indication: OVARIAN CANCER
     Dosage: 2.5 MG,ON DAY 1,3,5,15,17,19
     Route: 042
     Dates: start: 20130904, end: 20140124
  3. PLACEBO [Suspect]
     Indication: OVARIAN CANCER
     Dosage: 2.5 MG,ON DAY 1,3,5,15,17,19
     Route: 042
     Dates: start: 20130904, end: 20140124
  4. EC20 [Suspect]
     Indication: SINGLE PHOTON EMISSION COMPUTERISED TOMOGRAM
     Route: 042
     Dates: start: 20130808, end: 20130808
  5. FOLIC ACID [Suspect]
     Indication: SINGLE PHOTON EMISSION COMPUTERISED TOMOGRAM
     Route: 042
     Dates: start: 20130808, end: 20130808
  6. DURAGESIC [Concomitant]
     Indication: PAIN
     Dosage: 50 MCG
     Route: 062
     Dates: start: 20140117

REACTIONS (9)
  - Pancytopenia [Not Recovered/Not Resolved]
  - Pyrexia [Recovered/Resolved]
  - Nausea [Recovered/Resolved]
  - Atelectasis [Unknown]
  - Pneumonia [Unknown]
  - Dysuria [Unknown]
  - Pleural effusion [Unknown]
  - Blood urea increased [Unknown]
  - Vomiting [Recovered/Resolved]
